FAERS Safety Report 13627203 (Version 3)
Quarter: 2017Q4

REPORT INFORMATION
  Report Type: Report from Study
  Country: US (occurrence: US)
  Receive Date: 20170607
  Receipt Date: 20171115
  Transmission Date: 20180320
  Serious: Yes (Other)
  Sender: FDA-Public Use
  Company Number: US-GILEAD-2017-0275838

PATIENT
  Age: 75 Year
  Sex: Female

DRUGS (5)
  1. AMBRISENTAN [Suspect]
     Active Substance: AMBRISENTAN
     Indication: PRODUCT USED FOR UNKNOWN INDICATION
     Dosage: 10 MG, QD
     Route: 065
     Dates: start: 20090513
  2. DILTIAZEM. [Concomitant]
     Active Substance: DILTIAZEM
  3. COUMADINE [Concomitant]
     Active Substance: WARFARIN SODIUM
  4. AMBRISENTAN [Suspect]
     Active Substance: AMBRISENTAN
     Dosage: 5 MG, UNK
     Route: 065
  5. WARFARIN [Concomitant]
     Active Substance: WARFARIN

REACTIONS (11)
  - Dyspnoea [Not Recovered/Not Resolved]
  - Hypotension [Unknown]
  - Cardiac flutter [Recovered/Resolved]
  - Chronic obstructive pulmonary disease [Not Recovered/Not Resolved]
  - Tachycardia [Unknown]
  - Oxygen saturation decreased [Not Recovered/Not Resolved]
  - Dizziness [Not Recovered/Not Resolved]
  - Oedema peripheral [Unknown]
  - Atrial fibrillation [Unknown]
  - Presyncope [Recovered/Resolved]
  - Dizziness [Recovered/Resolved]
